FAERS Safety Report 6523366-5 (Version None)
Quarter: 2009Q4

REPORT INFORMATION
  Report Type: 
  Country: None (occurrence: None)
  Receive Date: 20091231
  Receipt Date: 20091224
  Transmission Date: 20100525
  Serious: Yes (Other)
  Sender: FDA-Public Use
  Company Number: JP-ROCHE-671747

PATIENT
  Sex: Male
  Weight: 19 kg

DRUGS (6)
  1. TAMIFLU [Suspect]
     Indication: INFLUENZA
     Dosage: DRUG REPORTED: TAMIFLU DRY SYRUP 3%(OSELTAMIVIR)
     Route: 048
     Dates: start: 20091121, end: 20091125
  2. TAMIFLU [Suspect]
     Dosage: DRUG REPORTED: TAMIFLU DRY SYRUP 3% (OSELTAMIVIR)
     Route: 048
     Dates: start: 20091126, end: 20091126
  3. COCARL [Concomitant]
     Dosage: REPORTED AS COCARL (ACETAMINOPHEN).
     Route: 048
     Dates: start: 20091120
  4. ASVERIN [Concomitant]
     Dosage: DRUG REPORTED: ASVERIN (TIPEPIDINE HIBENZATE)
     Route: 048
     Dates: start: 20091120
  5. MUCODYNE [Concomitant]
     Dosage: DRUG REPORTED: MUCODYNE DS
     Route: 048
     Dates: start: 20091120
  6. MUCOSAL [Concomitant]
     Dosage: DRUG REPORTED: MUCOSAL (AMBROXOL HYDROCHLORIDE)
     Route: 048
     Dates: start: 20091120

REACTIONS (1)
  - ABNORMAL BEHAVIOUR [None]
